FAERS Safety Report 4347355-4 (Version None)
Quarter: 2004Q2

REPORT INFORMATION
  Report Type: 
  Country: None (occurrence: None)
  Receive Date: 20040421
  Receipt Date: 20040415
  Transmission Date: 20050107
  Serious: Yes (Hospitalization)
  Sender: FDA-Public Use
  Company Number: 2004SE02105

PATIENT
  Age: 70 Year
  Sex: Male
  Weight: 68 kg

DRUGS (6)
  1. BLOPRESS [Suspect]
     Indication: HYPERTENSION
     Dosage: 8 MG QD PO
     Route: 048
     Dates: start: 20040119, end: 20040315
  2. AMLODIPINE [Suspect]
     Indication: HYPERTENSION
     Dosage: CUMALATIVE DOSE: 285MG
     Dates: start: 20040119, end: 20040315
  3. CARDENALIN [Suspect]
     Indication: HYPERTENSION
     Dosage: 0.5 MG DAILY PO
     Route: 048
     Dates: start: 20040121, end: 20040314
  4. TAKEPRON [Concomitant]
  5. REBAMIPIDE [Concomitant]
  6. BROTIZOLAM [Concomitant]

REACTIONS (3)
  - ANAEMIA POSTOPERATIVE [None]
  - SPUTUM CULTURE POSITIVE [None]
  - STAPHYLOCOCCAL INFECTION [None]
